FAERS Safety Report 13883416 (Version 1)
Quarter: 2017Q3

REPORT INFORMATION
  Report Type: Spontaneous
  Country: IE (occurrence: IE)
  Receive Date: 20170818
  Receipt Date: 20170818
  Transmission Date: 20171127
  Serious: Yes (Other)
  Sender: FDA-Public Use
  Company Number: IE-TEIKOKU PHARMA USA-TPU2017-00502

PATIENT
  Age: 70 Year
  Sex: Male

DRUGS (3)
  1. VERSATIS [Suspect]
     Active Substance: LIDOCAINE
     Indication: ANALGESIC THERAPY
     Route: 061
     Dates: start: 20170719, end: 20170720
  2. ZOLPIDEM [Concomitant]
     Active Substance: ZOLPIDEM\ZOLPIDEM TARTRATE
     Dates: start: 20170719
  3. VERSATIS [Suspect]
     Active Substance: LIDOCAINE
     Indication: LOCAL ANAESTHESIA

REACTIONS (5)
  - Vein disorder [Recovered/Resolved]
  - Abdominal discomfort [Recovered/Resolved]
  - Headache [Recovered/Resolved]
  - Off label use [Recovered/Resolved]
  - Frequent bowel movements [Recovered/Resolved]

NARRATIVE: CASE EVENT DATE: 20170719
